FAERS Safety Report 8261719-8 (Version None)
Quarter: 2012Q2

REPORT INFORMATION
  Report Type: 
  Country: None (occurrence: None)
  Receive Date: 20120405
  Receipt Date: 20120330
  Transmission Date: 20120825
  Serious: No
  Sender: FDA-Public Use
  Company Number: US-PFIZER INC-2011255547

PATIENT
  Sex: Male

DRUGS (4)
  1. XALKORI [Suspect]
     Indication: LUNG NEOPLASM MALIGNANT
     Dosage: 250 MG, 2X/DAY
     Route: 048
     Dates: start: 20111015
  2. TOPROL-XL [Concomitant]
     Dosage: 125 MG, DAILY
  3. ZANTAC [Concomitant]
     Dosage: 150 MG, 2X/DAY
  4. ALTACE [Concomitant]
     Dosage: 5 MG, DAILY

REACTIONS (3)
  - VISION BLURRED [None]
  - NAUSEA [None]
  - DIARRHOEA [None]
